FAERS Safety Report 9328606 (Version 1)
Quarter: 2013Q2

REPORT INFORMATION
  Report Type: Spontaneous
  Country: US (occurrence: US)
  Receive Date: 20130604
  Receipt Date: 20130604
  Transmission Date: 20140414
  Serious: No
  Sender: FDA-Public Use
  Company Number: US-SANOFI-AVENTIS-2013SA007830

PATIENT
  Age: 64 Year
  Sex: Male

DRUGS (2)
  1. SOLOSTAR [Suspect]
     Indication: TYPE 2 DIABETES MELLITUS
  2. LANTUS SOLOSTAR [Suspect]
     Indication: TYPE 2 DIABETES MELLITUS
     Dosage: 50 UNITS IN AM AND 35 UNITS IN PM
     Route: 051
     Dates: start: 2009

REACTIONS (3)
  - Injury associated with device [Unknown]
  - Feeling abnormal [Unknown]
  - Discomfort [Unknown]
